FAERS Safety Report 20704407 (Version 1)
Quarter: 2022Q2

REPORT INFORMATION
  Report Type: Spontaneous
  Country: US (occurrence: None)
  Receive Date: 20220412
  Receipt Date: 20220412
  Transmission Date: 20220721
  Serious: Yes (Death)
  Sender: FDA-Public Use
  Company Number: None

PATIENT
  Age: 74 Year
  Sex: Female

DRUGS (1)
  1. RETACRIT [Suspect]
     Active Substance: EPOETIN ALFA-EPBX
     Dosage: OTHER QUANTITY : 10,000 UNITS/ML;?OTHER FREQUENCY : N/A;?
     Route: 058
     Dates: start: 201909

REACTIONS (1)
  - Death [None]

NARRATIVE: CASE EVENT DATE: 20220412
